FAERS Safety Report 6842908-3 (Version None)
Quarter: 2010Q3

REPORT INFORMATION
  Report Type: 
  Country: None (occurrence: None)
  Receive Date: 20100714
  Receipt Date: 20070813
  Transmission Date: 20110219
  Serious: No
  Sender: FDA-Public Use
  Company Number: US-PFIZER INC-2007067548

PATIENT
  Sex: Female

DRUGS (6)
  1. CHANTIX [Suspect]
     Indication: SMOKING CESSATION THERAPY
     Dates: start: 20070101
  2. BACLOFEN [Concomitant]
  3. MORPHINE [Concomitant]
  4. ZOLOFT [Concomitant]
  5. BENADRYL [Concomitant]
  6. IMMU-G [Concomitant]
     Route: 042

REACTIONS (3)
  - HEADACHE [None]
  - INSOMNIA [None]
  - NAUSEA [None]
